FAERS Safety Report 10489900 (Version 1)
Quarter: 2014Q4

REPORT INFORMATION
  Report Type: Report from Study
  Country: BR (occurrence: BR)
  Receive Date: 20141002
  Receipt Date: 20141002
  Transmission Date: 20150528
  Serious: Yes (Hospitalization)
  Sender: FDA-Public Use
  Company Number: BR-ABBVIE-14K-020-1289553-00

PATIENT
  Age: 51 Year
  Sex: Male
  Weight: 72 kg

DRUGS (2)
  1. HUMIRA [Suspect]
     Active Substance: ADALIMUMAB
     Indication: ANKYLOSING SPONDYLITIS
     Route: 058
     Dates: end: 20131001
  2. DIACEREIN [Concomitant]
     Active Substance: DIACEREIN
     Indication: OSTEOARTHRITIS
     Route: 048

REACTIONS (10)
  - Dry skin [Recovered/Resolved]
  - Computerised tomogram abnormal [Unknown]
  - Viral infection [Recovered/Resolved]
  - Ascites [Unknown]
  - Blood cholesterol abnormal [Unknown]
  - Cough [Recovered/Resolved]
  - Tuberculosis gastrointestinal [Not Recovered/Not Resolved]
  - Viral infection [Recovered/Resolved]
  - Intervertebral disc disorder [Recovering/Resolving]
  - Ileal ulcer [Unknown]

NARRATIVE: CASE EVENT DATE: 201312
